FAERS Safety Report 5175447-9 (Version None)
Quarter: 2006Q4

REPORT INFORMATION
  Report Type: 
  Country: None (occurrence: None)
  Receive Date: 20061215
  Receipt Date: 20061115
  Transmission Date: 20070319
  Serious: Yes (Hospitalization, Other)
  Sender: FDA-Public Use
  Company Number: PHFR2006GB03394

PATIENT
  Age: 48 Year
  Sex: Male

DRUGS (8)
  1. CLOZARIL [Suspect]
     Indication: SCHIZOPHRENIA
     Dosage: {300MG / DAY
     Route: 048
     Dates: start: 20061024, end: 20061110
  2. FLUOXETINE [Concomitant]
     Indication: DEPRESSION
     Dosage: 20MG / DAY
     Route: 048
     Dates: start: 20050501, end: 20061115
  3. DEPAKOTE [Concomitant]
     Indication: MOOD ALTERED
     Dosage: 1250MG / DAY
     Route: 048
     Dates: start: 20050801
  4. HALOPERIDOL [Concomitant]
     Indication: PSYCHOTIC DISORDER
     Dosage: 3MG / DAY
     Route: 048
     Dates: start: 20050801
  5. LEVOTHYROXINE SODIUM [Concomitant]
     Indication: HYPOTHYROIDISM
     Dosage: 125MCG
     Route: 048
     Dates: start: 20051101
  6. OLANZAPINE [Concomitant]
     Indication: PSYCHOTIC DISORDER
     Dosage: 10MG / DAY
     Route: 048
     Dates: start: 20050701
  7. DEPIXOL [Concomitant]
     Indication: PSYCHOTIC DISORDER
     Dosage: 100 MG, QW4
     Route: 030
     Dates: end: 20060602
  8. PIRITON [Concomitant]
     Indication: RASH
     Dosage: 12MG / DAY
     Route: 048
     Dates: start: 20061110, end: 20061121

REACTIONS (10)
  - ALANINE AMINOTRANSFERASE INCREASED [None]
  - C-REACTIVE PROTEIN INCREASED [None]
  - INFLAMMATION [None]
  - NEUTROPENIA [None]
  - PLATELET COUNT DECREASED [None]
  - PYREXIA [None]
  - RASH [None]
  - RED BLOOD CELL SEDIMENTATION RATE INCREASED [None]
  - VASCULITIS [None]
  - WHITE BLOOD CELL COUNT DECREASED [None]
